FAERS Safety Report 15366563 (Version 1)
Quarter: 2018Q3

REPORT INFORMATION
  Report Type: Spontaneous
  Country: DK (occurrence: DK)
  Receive Date: 20180910
  Receipt Date: 20180910
  Transmission Date: 20181010
  Serious: Yes (Hospitalization)
  Sender: FDA-Public Use
  Company Number: DK-B.I. PHARMACEUTICALS,INC./RIDGEFIELD-2018-12-003042

PATIENT
  Age: 55 Year
  Sex: Female

DRUGS (7)
  1. STESOLID [Concomitant]
     Active Substance: DIAZEPAM
     Indication: SEIZURE
     Dosage: FORMULATION: RECTAL SOLUTION; FORM STRENGTH: 5 MG/ML.
     Route: 054
  2. LAMICTAL [Concomitant]
     Active Substance: LAMOTRIGINE
     Indication: EPILEPSY
     Route: 065
  3. TRAJENTA [Suspect]
     Active Substance: LINAGLIPTIN
     Indication: TYPE 2 DIABETES MELLITUS
     Route: 048
     Dates: start: 20180814
  4. LOSARSTAD COMP [Concomitant]
     Active Substance: HYDROCHLOROTHIAZIDE\LOSARTAN POTASSIUM
     Indication: HYPERTENSION
     Dosage: STYRKE: 100 + 25 MG
     Route: 048
     Dates: start: 20170316
  5. TRIMONIL [Concomitant]
     Active Substance: CARBAMAZEPINE
     Indication: EPILEPSY
     Route: 048
     Dates: start: 20161206
  6. METFORMIN [Concomitant]
     Active Substance: METFORMIN HYDROCHLORIDE
     Indication: TYPE 2 DIABETES MELLITUS
     Route: 048
     Dates: start: 20160411
  7. SIMVASTATIN. [Concomitant]
     Active Substance: SIMVASTATIN
     Indication: HYPERCHOLESTEROLAEMIA
     Route: 048

REACTIONS (4)
  - Amylase increased [Recovered/Resolved]
  - General physical health deterioration [Unknown]
  - Pancreatitis [Unknown]
  - Vomiting [Unknown]

NARRATIVE: CASE EVENT DATE: 201808
